FAERS Safety Report 4455771-5 (Version None)
Quarter: 2004Q3

REPORT INFORMATION
  Report Type: 
  Country: None (occurrence: None)
  Receive Date: 20040917
  Receipt Date: 20040902
  Transmission Date: 20050211
  Serious: Yes (Death)
  Sender: FDA-Public Use
  Company Number: 800113

PATIENT
  Age: 87 Year
  Sex: Female
  Weight: 46 kg

DRUGS (8)
  1. EXTRANEAL [Suspect]
     Indication: PERITONEAL DIALYSIS
     Dosage: 1500 ML; QD; INTRAPERITONEAL
     Route: 033
     Dates: start: 20031008, end: 20031208
  2. DIANEAL [Concomitant]
  3. TAKEPRON [Concomitant]
  4. BIOFERMIN [Concomitant]
  5. MIYA-BM [Concomitant]
  6. MUCOSAL [Concomitant]
  7. MUCODYNE [Concomitant]
  8. CALCIUM CARBONATE [Concomitant]

REACTIONS (3)
  - HYPOKALAEMIA [None]
  - IRON DEFICIENCY ANAEMIA [None]
  - RESPIRATORY FAILURE [None]
